FAERS Safety Report 6885605-0 (Version None)
Quarter: 2010Q3

REPORT INFORMATION
  Report Type: 
  Country: None (occurrence: None)
  Receive Date: 20100729
  Receipt Date: 20080208
  Transmission Date: 20110219
  Serious: No
  Sender: FDA-Public Use
  Company Number: US-PFIZER INC-2008013407

PATIENT
  Sex: Female
  Weight: 81.8 kg

DRUGS (6)
  1. CELEBREX [Suspect]
     Indication: BACK PAIN
     Dates: start: 20080101, end: 20080101
  2. BACTRIM [Suspect]
     Dates: start: 20080101, end: 20080101
  3. VESICARE [Concomitant]
  4. ELMIRON [Concomitant]
  5. MONTELUKAST SODIUM [Concomitant]
  6. SYNTHROID [Concomitant]

REACTIONS (2)
  - PRURITUS [None]
  - URTICARIA [None]
